FAERS Safety Report 9283636 (Version 1)
Quarter: 2013Q2

REPORT INFORMATION
  Report Type: Spontaneous
  Country: NZ (occurrence: NZ)
  Receive Date: 20130510
  Receipt Date: 20130510
  Transmission Date: 20140414
  Serious: Yes (Other)
  Sender: FDA-Public Use
  Company Number: PHHY2013NZ046003

PATIENT
  Age: 76 Year
  Sex: Male

DRUGS (4)
  1. DICLOFENAC [Suspect]
     Dosage: UNK UKN, UNK
     Route: 048
  2. DUPHALAC [Concomitant]
     Dosage: UNK UKN, UNK
     Route: 048
  3. TAMSULOSIN [Concomitant]
     Dosage: UNK UKN, UNK
     Route: 048
  4. SOLIFENACIN [Concomitant]
     Dosage: UNK UKN, UNK
     Route: 048

REACTIONS (1)
  - Diplopia [Unknown]
